FAERS Safety Report 15173305 (Version 2)
Quarter: 2018Q3

REPORT INFORMATION
  Report Type: Report from Study
  Country: US (occurrence: US)
  Receive Date: 20180720
  Receipt Date: 20180820
  Transmission Date: 20181010
  Serious: Yes (Other)
  Sender: FDA-Public Use
  Company Number: US-BAYER-2018-094477

PATIENT
  Age: 47 Year
  Sex: Male

DRUGS (4)
  1. STIVARGA [Suspect]
     Active Substance: REGORAFENIB
     Indication: COLORECTAL CANCER
     Dosage: DAILY DOSE 80 MG FOR 1 WEEK, 120 MG DAILY X  1 WEEK, 160 MG DAILY X 1 WEEK, OFF  1 WEEK
     Route: 048
     Dates: start: 20180513, end: 201805
  2. STIVARGA [Suspect]
     Active Substance: REGORAFENIB
     Indication: COLORECTAL CANCER
     Dosage: 40 MG, QD
     Route: 048
     Dates: start: 20180512, end: 20180512
  3. STIVARGA [Suspect]
     Active Substance: REGORAFENIB
     Indication: COLORECTAL CANCER
     Dosage: 160 MG DAILY
     Route: 048
     Dates: start: 2018, end: 201807
  4. STIVARGA [Suspect]
     Active Substance: REGORAFENIB
     Indication: COLORECTAL CANCER
     Dosage: 120 MG DAILY
     Route: 048
     Dates: start: 201805, end: 201805

REACTIONS (15)
  - Neuropathy peripheral [None]
  - Nausea [Not Recovered/Not Resolved]
  - Rash [None]
  - Fatigue [Not Recovered/Not Resolved]
  - Erythema [None]
  - Abdominal distension [Not Recovered/Not Resolved]
  - Haemorrhagic diathesis [None]
  - Vomiting [None]
  - Decreased appetite [None]
  - Off label use [None]
  - Pain in extremity [None]
  - Drug ineffective [None]
  - Blood pressure increased [None]
  - Pain [None]
  - Flatulence [None]

NARRATIVE: CASE EVENT DATE: 2018
